FAERS Safety Report 15774860 (Version 2)
Quarter: 2019Q2

REPORT INFORMATION
  Report Type: Report from Study
  Country: JP (occurrence: JP)
  Receive Date: 20181230
  Receipt Date: 20190403
  Transmission Date: 20190711
  Serious: Yes (Death)
  Sender: FDA-Public Use
  Company Number: JP-BEH-2018098070

PATIENT
  Age: 55 Year
  Sex: Male
  Weight: 63 kg

DRUGS (11)
  1. FAMOTIDINE. [Concomitant]
     Active Substance: FAMOTIDINE
     Dosage: 1 AMPULE {20MG, 1 AMPULE}
     Route: 042
     Dates: start: 20180726, end: 20180726
  2. ISOTONIC SODIUM CHLORIDE SOLUTION [Concomitant]
     Active Substance: SODIUM CHLORIDE
     Dosage: 3 AMPULES {20ML 1 AMPULE}
     Route: 065
     Dates: start: 20180726, end: 20180726
  3. WARFARIN [Concomitant]
     Active Substance: WARFARIN
     Indication: CEREBRAL INFARCTION
     Dosage: 2 MG, QD
     Route: 048
  4. NICARDIPINE [Concomitant]
     Active Substance: NICARDIPINE
     Dosage: 6 AMPULES {10 MG, 10 ML AMPULE}
     Route: 065
     Dates: start: 20180726, end: 20180726
  5. ISOTONIC SODIUM CHLORIDE SOLUTION [Concomitant]
     Active Substance: SODIUM CHLORIDE
     Dosage: 2 AMPULES {20 ML, 1 AMPULE}
     Route: 042
     Dates: start: 20180726, end: 20180726
  6. SOLDEM 1 [Concomitant]
     Active Substance: DEXTROSE\SODIUM CHLORIDE\SODIUM LACTATE
     Dosage: 500 ML, 1 BAG
     Route: 041
     Dates: start: 20180726, end: 20180726
  7. BERIPLEX P/N [Suspect]
     Active Substance: COAGULATION FACTOR IX HUMAN\COAGULATION FACTOR VII HUMAN\COAGULATION FACTOR X HUMAN\PROTEIN C\PROTEIN S HUMAN\PROTHROMBIN
     Indication: HAEMORRHAGE
     Dosage: 1000 IU, UNK
     Route: 042
     Dates: start: 20180726, end: 20180726
  8. KAYTWO N [Concomitant]
     Active Substance: MENATETRENONE
     Indication: PROCOAGULANT THERAPY
     Dosage: 20 MG, UNK
     Route: 042
     Dates: start: 20180726, end: 20180726
  9. CARBAZOCHROME [Concomitant]
     Active Substance: CARBAZOCHROME
     Dosage: 2 AMPULES {5ML}
     Route: 041
     Dates: start: 20180726, end: 20180726
  10. ISOTONIC SODIUM CHLORIDE SOLUTION [Concomitant]
     Active Substance: SODIUM CHLORIDE
     Dosage: 100ML 1 BAG
     Route: 041
     Dates: start: 20180726, end: 20180726
  11. TRANEXAMIC ACID. [Concomitant]
     Active Substance: TRANEXAMIC ACID
     Dosage: 1 AMPULE {10ML, 1 AMPULE}
     Route: 041
     Dates: start: 20180726, end: 20180726

REACTIONS (1)
  - Cerebral haemorrhage [Fatal]

NARRATIVE: CASE EVENT DATE: 20180726
